FAERS Safety Report 4264812-X (Version None)
Quarter: 2004Q1

REPORT INFORMATION
  Report Type: 
  Country: None (occurrence: None)
  Receive Date: 20040106
  Receipt Date: 20031223
  Transmission Date: 20041129
  Serious: Yes (Death, Life-Threatening, Hospitalization)
  Sender: FDA-Public Use
  Company Number: OXCD20030010

PATIENT
  Age: 32 Year
  Sex: Male

DRUGS (2)
  1. OXYCODONE HCL [Suspect]
     Indication: DRUG ABUSER
     Dosage: PO
     Route: 048
     Dates: end: 20020101
  2. COCAINE [Suspect]
     Indication: DRUG ABUSER
     Dates: end: 20020101

REACTIONS (7)
  - ANOXIC ENCEPHALOPATHY [None]
  - BRAIN DEATH [None]
  - COMA [None]
  - DIABETES INSIPIDUS [None]
  - MULTIPLE DRUG OVERDOSE [None]
  - RESPIRATORY RATE DECREASED [None]
  - VOMITING [None]
